FAERS Safety Report 19269000 (Version 1)
Quarter: 2021Q2

REPORT INFORMATION
  Report Type: Spontaneous
  Country: FR (occurrence: FR)
  Receive Date: 20210518
  Receipt Date: 20210518
  Transmission Date: 20210717
  Serious: Yes (Death, Hospitalization, Other)
  Sender: FDA-Public Use
  Company Number: FR-ASTELLAS-2021US017447

PATIENT
  Age: 5 Decade
  Sex: Male
  Weight: 44 kg

DRUGS (17)
  1. MYCOPHENOLATE MOFETIL. [Concomitant]
     Active Substance: MYCOPHENOLATE MOFETIL
     Indication: LUNG TRANSPLANT
     Dosage: UNK UNK, UNKNOWN FREQ.
     Route: 065
     Dates: start: 201911, end: 2020
  2. VALGANCICLOVIR. [Concomitant]
     Active Substance: VALGANCICLOVIR
     Indication: PROPHYLACTIC CHEMOTHERAPY
     Dosage: UNK UNK, UNKNOWN FREQ.
     Route: 065
     Dates: start: 2019, end: 2020
  3. REMDESIVIR. [Suspect]
     Active Substance: REMDESIVIR
     Route: 042
     Dates: start: 2020, end: 2020
  4. RITUXIMAB. [Concomitant]
     Active Substance: RITUXIMAB
     Dosage: UNK UNK, UNKNOWN FREQ.
     Route: 065
     Dates: start: 2020, end: 2020
  5. TOCILIZUMAB. [Concomitant]
     Active Substance: TOCILIZUMAB
     Indication: PRODUCT USED FOR UNKNOWN INDICATION
     Route: 065
     Dates: start: 2020, end: 2020
  6. ISAVUCONAZOLE [Suspect]
     Active Substance: ISAVUCONAZOLE
     Indication: PROPHYLACTIC CHEMOTHERAPY
     Dosage: UNK UNK, UNKNOWN FREQ.
     Route: 065
     Dates: start: 2019, end: 2020
  7. REMDESIVIR. [Suspect]
     Active Substance: REMDESIVIR
     Indication: COVID-19
     Dosage: 200 MG, ONCE DAILY (ON DAY 21)
     Route: 042
     Dates: start: 2020, end: 2020
  8. AMOXICILLIN/CLAVULANIC ACID [Concomitant]
     Active Substance: AMOXICILLIN\CLAVULANIC ACID
     Indication: EVIDENCE BASED TREATMENT
     Dosage: UNK UNK, UNKNOWN FREQ.
     Route: 065
     Dates: start: 2020, end: 2020
  9. ENOXAPARIN [Concomitant]
     Active Substance: ENOXAPARIN
     Indication: PULMONARY EMBOLISM
     Dosage: UNK UNK, UNKNOWN FREQ.
     Route: 065
     Dates: start: 2020, end: 2020
  10. RITUXIMAB. [Concomitant]
     Active Substance: RITUXIMAB
     Indication: PRODUCT USED FOR UNKNOWN INDICATION
     Dosage: UNK UNK, UNKNOWN FREQ.
     Route: 065
     Dates: start: 2019
  11. ANAKINRA [Concomitant]
     Active Substance: ANAKINRA
     Indication: PRODUCT USED FOR UNKNOWN INDICATION
     Dosage: UNK UNK, UNKNOWN FREQ.
     Route: 065
     Dates: start: 2020, end: 2020
  12. TACROLIMUS. [Suspect]
     Active Substance: TACROLIMUS
     Indication: LUNG TRANSPLANT
     Dosage: UNK UNK, UNKNOWN FREQ.
     Route: 065
     Dates: start: 201911, end: 2020
  13. DEXAMETHASONE. [Concomitant]
     Active Substance: DEXAMETHASONE
     Indication: LUNG TRANSPLANT
     Dosage: UNK UNK, UNKNOWN FREQ.
     Route: 065
     Dates: start: 201911
  14. DEXAMETHASONE. [Concomitant]
     Active Substance: DEXAMETHASONE
     Indication: EVIDENCE BASED TREATMENT
     Dosage: 20 MG, ONCE DAILY (INITIATED ON DAY 7)
     Route: 065
     Dates: start: 2020
  15. SULFAMETHOXAZOLE AND TRIMETHOPRIM [Concomitant]
     Active Substance: SULFAMETHOXAZOLE\TRIMETHOPRIM
     Indication: PROPHYLACTIC CHEMOTHERAPY
     Dosage: UNK UNK, UNKNOWN FREQ.
     Route: 065
     Dates: start: 2019, end: 2020
  16. SULFAMETHOXAZOLE AND TRIMETHOPRIM [Concomitant]
     Active Substance: SULFAMETHOXAZOLE\TRIMETHOPRIM
     Indication: ANTIBIOTIC THERAPY
     Dosage: UNK UNK, UNKNOWN FREQ. (CURATIVE DOSE)
     Route: 065
     Dates: start: 2020, end: 2020
  17. PIPERACILLIN AND TAZOBACTAM [Concomitant]
     Active Substance: PIPERACILLIN SODIUM\TAZOBACTAM SODIUM
     Indication: ANTIBIOTIC THERAPY
     Dosage: UNK UNK, UNKNOWN FREQ.
     Route: 065
     Dates: start: 2020, end: 2020

REACTIONS (3)
  - Renal tubular necrosis [Unknown]
  - Renal impairment [Unknown]
  - Product use in unapproved indication [Unknown]

NARRATIVE: CASE EVENT DATE: 2020
